FAERS Safety Report 11771014 (Version 1)
Quarter: 2015Q4

REPORT INFORMATION
  Report Type: Spontaneous
  Country: US (occurrence: US)
  Receive Date: 20151123
  Receipt Date: 20151123
  Transmission Date: 20160304
  Serious: No
  Sender: FDA-Public Use
  Company Number: US-ASTRAZENECA-2015SF09928

PATIENT
  Sex: Female
  Weight: 59 kg

DRUGS (2)
  1. LANTUS [Concomitant]
     Active Substance: INSULIN GLARGINE
     Indication: TYPE 2 DIABETES MELLITUS
  2. FARXIGA [Suspect]
     Active Substance: DAPAGLIFLOZIN PROPANEDIOL
     Indication: TYPE 2 DIABETES MELLITUS
     Route: 048
     Dates: start: 2015, end: 2015

REACTIONS (5)
  - Pruritus genital [Recovered/Resolved]
  - Blood glucose increased [Unknown]
  - Drug ineffective [Unknown]
  - Genital rash [Recovered/Resolved]
  - Pollakiuria [Unknown]
